FAERS Safety Report 6912751-5 (Version None)
Quarter: 2010Q3

REPORT INFORMATION
  Report Type: 
  Country: None (occurrence: None)
  Receive Date: 20100806
  Receipt Date: 20081103
  Transmission Date: 20110219
  Serious: No
  Sender: FDA-Public Use
  Company Number: US-PFIZER INC-2008093178

PATIENT
  Sex: Female
  Weight: 77.11 kg

DRUGS (3)
  1. DILANTIN [Suspect]
     Indication: GRAND MAL CONVULSION
     Route: 048
  2. PHENYTOIN [Suspect]
     Indication: GRAND MAL CONVULSION
     Route: 048
     Dates: start: 20080101
  3. SYNTHROID [Concomitant]

REACTIONS (2)
  - ANTICONVULSANT DRUG LEVEL ABOVE THERAPEUTIC [None]
  - DIZZINESS [None]
